FAERS Safety Report 4711408-9 (Version None)
Quarter: 2005Q3

REPORT INFORMATION
  Report Type: 
  Country: None (occurrence: None)
  Receive Date: 20050711
  Receipt Date: 20050627
  Transmission Date: 20060218
  Serious: Yes (Hospitalization, Other)
  Sender: FDA-Public Use
  Company Number: 2005065080

PATIENT
  Age: 10 Year
  Sex: Male
  Weight: 50.7 kg

DRUGS (1)
  1. GENOTROPIN (SOMATROPIN) [Suspect]
     Indication: GROWTH HORMONE DEFICIENCY
     Dosage: 1.8 MG (1.8 MG, 6 TIMES A WEEK), SUBCUTANEOUS
     Route: 058
     Dates: start: 20001115

REACTIONS (4)
  - FLANK PAIN [None]
  - GLOMERULONEPHRITIS PROLIFERATIVE [None]
  - HAEMATURIA [None]
  - NEPHRITIS [None]
